FAERS Safety Report 6871100-1 (Version None)
Quarter: 2010Q3

REPORT INFORMATION
  Report Type: 
  Country: None (occurrence: None)
  Receive Date: 20100723
  Receipt Date: 20100715
  Transmission Date: 20110219
  Serious: Yes (Other)
  Sender: FDA-Public Use
  Company Number: US-ELI_LILLY_AND_COMPANY-US201006004393

PATIENT
  Sex: Male
  Weight: 108.84 kg

DRUGS (2)
  1. EFFIENT [Suspect]
  2. ASPIRIN [Concomitant]
     Dosage: 325 D/F, UNKNOWN

REACTIONS (3)
  - FALL [None]
  - SUBDURAL HAEMATOMA [None]
  - SYNCOPE [None]
